FAERS Safety Report 4263220-5 (Version None)
Quarter: 2004Q1

REPORT INFORMATION
  Report Type: 
  Country: None (occurrence: None)
  Receive Date: 20040104
  Receipt Date: 20040104
  Transmission Date: 20041129
  Serious: Yes (Other)
  Sender: FDA-Public Use
  Company Number: None

PATIENT
  Sex: Female
  Weight: 63.5036 kg

DRUGS (2)
  1. DOXYCYCLINE [Suspect]
     Indication: ACNE
     Dosage: PO BID
     Route: 048
     Dates: start: 20021201, end: 20030901
  2. ORTHO TRI-CYCLEN [Concomitant]

REACTIONS (5)
  - ANAEMIA [None]
  - FATIGUE [None]
  - MALAISE [None]
  - PYREXIA [None]
  - RED BLOOD CELL SEDIMENTATION RATE INCREASED [None]
